FAERS Safety Report 5685403-X (Version None)
Quarter: 2008Q1

REPORT INFORMATION
  Report Type: 
  Country: None (occurrence: None)
  Receive Date: 20080328
  Receipt Date: 20080318
  Transmission Date: 20080703
  Serious: Yes (Other)
  Sender: FDA-Public Use
  Company Number: AU-PFIZER INC-2008025794

PATIENT
  Age: 55 Year
  Sex: Male

DRUGS (1)
  1. CHAMPIX [Suspect]

REACTIONS (4)
  - ALCOHOL POISONING [None]
  - MEMORY IMPAIRMENT [None]
  - PHYSICAL ASSAULT [None]
  - VERBAL ABUSE [None]
